FAERS Safety Report 14246350 (Version 1)
Quarter: 2017Q4

REPORT INFORMATION
  Report Type: Spontaneous
  Country: US (occurrence: US)
  Receive Date: 20171204
  Receipt Date: 20171204
  Transmission Date: 20180321
  Serious: No
  Sender: FDA-Public Use
  Company Number: US-TEVA-815665ACC

PATIENT
  Sex: Female

DRUGS (1)
  1. TOLTERODINE [Suspect]
     Active Substance: TOLTERODINE
     Indication: INCONTINENCE

REACTIONS (2)
  - Product use complaint [Unknown]
  - Wrong technique in product usage process [Unknown]
